FAERS Safety Report 4603898-7 (Version None)
Quarter: 2005Q1

REPORT INFORMATION
  Report Type: 
  Country: None (occurrence: None)
  Receive Date: 20050310
  Receipt Date: 20050218
  Transmission Date: 20050727
  Serious: Yes (Hospitalization)
  Sender: FDA-Public Use
  Company Number: JP-ROCHE-396370

PATIENT
  Age: 91 Year
  Sex: Male

DRUGS (6)
  1. ROCEPHIN [Suspect]
     Indication: BRONCHOPNEUMONIA
     Route: 041
     Dates: start: 20050122, end: 20050122
  2. DINOPROST [Suspect]
     Indication: DRUG USE FOR UNKNOWN INDICATION
     Dosage: TRADE NAME REPORTED AS PROSMON.
     Route: 042
     Dates: start: 20050122, end: 20050122
  3. BLOPRESS [Concomitant]
     Route: 048
     Dates: start: 20041106, end: 20050210
  4. SENNA EXTRACT [Concomitant]
     Dosage: TRADE NAME REPORTED AS YODEL S.
     Route: 048
     Dates: start: 20041106
  5. GLUNON 50% [Concomitant]
     Route: 042
     Dates: start: 20050122, end: 20050122
  6. THIAMINE HCL [Concomitant]
     Route: 042
     Dates: start: 20050122, end: 20050122

REACTIONS (3)
  - COUGH [None]
  - FACE OEDEMA [None]
  - TRACHEAL STENOSIS [None]
